FAERS Safety Report 19399141 (Version 1)
Quarter: 2021Q2

REPORT INFORMATION
  Report Type: Spontaneous
  Country: HU (occurrence: HU)
  Receive Date: 20210610
  Receipt Date: 20210610
  Transmission Date: 20210717
  Serious: Yes (Death, Other)
  Sender: FDA-Public Use
  Company Number: HU-HRARD-2021000466

PATIENT
  Age: 64 Year
  Sex: Female

DRUGS (2)
  1. MITOTANE [Suspect]
     Active Substance: MITOTANE
     Dosage: MAINTENANCE DOSE BETWEEN 2 AND 2.5 G PER DAY FOLLOWING 2 MONTHS OF TITRATION
  2. HYDROCORTISONE. [Concomitant]
     Active Substance: HYDROCORTISONE

REACTIONS (1)
  - Sudden death [Fatal]
